FAERS Safety Report 20782349 (Version 1)
Quarter: 2022Q2

REPORT INFORMATION
  Report Type: Spontaneous
  Country: KR (occurrence: KR)
  Receive Date: 20220504
  Receipt Date: 20220504
  Transmission Date: 20220721
  Serious: Yes (Hospitalization, Other)
  Sender: FDA-Public Use
  Company Number: KR-Accord-253765

PATIENT
  Age: 61 Year
  Sex: Female

DRUGS (3)
  1. FLUOROURACIL [Suspect]
     Active Substance: FLUOROURACIL
     Indication: Metastases to liver
     Dosage: 5--FU 400 MG/M2 IV BOLUS, 2,400 (ON 2019) MG/M2 CONTINUOUS INFUSION BI-WEEKLY
     Route: 040
     Dates: start: 20190715, end: 2019
  2. IRINOTECAN [Suspect]
     Active Substance: IRINOTECAN
     Indication: Metastases to liver
     Dosage: 70 MG/M2, BI-WEEKLY
     Dates: start: 20190715
  3. LEUCOVORIN [Suspect]
     Active Substance: LEUCOVORIN
     Indication: Metastases to liver
     Dates: start: 20190715

REACTIONS (2)
  - Diarrhoea [Recovered/Resolved]
  - Cholangitis [Recovering/Resolving]

NARRATIVE: CASE EVENT DATE: 20190101
